FAERS Safety Report 16854098 (Version 2)
Quarter: 2020Q1

REPORT INFORMATION
  Report Type: Spontaneous
  Country: US (occurrence: US)
  Receive Date: 20190926
  Receipt Date: 20200217
  Transmission Date: 20200409
  Serious: Yes (Other)
  Sender: FDA-Public Use
  Company Number: US-EYEPOINT PHARMACEUTICALS, INC.-US-EYP-19-00112

PATIENT

DRUGS (1)
  1. DEXYCU [Suspect]
     Active Substance: DEXAMETHASONE
     Indication: PRODUCT USED FOR UNKNOWN INDICATION
     Route: 031

REACTIONS (2)
  - Iris atrophy [Recovered/Resolved]
  - Pupillary deformity [Recovered/Resolved]
